FAERS Safety Report 5356584-2 (Version None)
Quarter: 2007Q2

REPORT INFORMATION
  Report Type: 
  Country: None (occurrence: None)
  Receive Date: 20070614
  Receipt Date: 20070613
  Transmission Date: 20071010
  Serious: No
  Sender: FDA-Public Use
  Company Number: JP-SP-2007-01787

PATIENT
  Age: 78 Year
  Sex: Female

DRUGS (4)
  1. IMMUCYST [Suspect]
     Indication: CARCINOMA IN SITU OF BLADDER
     Route: 043
     Dates: start: 20060315, end: 20070517
  2. FAROPENEM SODIUM [Suspect]
     Indication: PROPHYLAXIS
     Dosage: 3 TABS/DAY
     Route: 048
     Dates: start: 20060315, end: 20060324
  3. LOXOPROFEN SODIUM [Suspect]
     Indication: PROPHYLAXIS
     Route: 048
     Dates: start: 20060315, end: 20060324
  4. DICLOFENAC SODIUM [Concomitant]
     Dates: start: 20060315, end: 20060517

REACTIONS (1)
  - RASH [None]
